FAERS Safety Report 9331554 (Version 1)
Quarter: 2013Q2

REPORT INFORMATION
  Report Type: Spontaneous
  Country: US (occurrence: US)
  Receive Date: 20130605
  Receipt Date: 20130605
  Transmission Date: 20140414
  Serious: No
  Sender: FDA-Public Use
  Company Number: US-PFIZER INC-2013166944

PATIENT
  Age: 60 Year
  Sex: Male
  Weight: 106.58 kg

DRUGS (1)
  1. TIKOSYN [Suspect]
     Dosage: 500 MG, 2X/DAY

REACTIONS (1)
  - Blood creatine increased [Unknown]
